FAERS Safety Report 14838663 (Version 1)
Quarter: 2018Q2

REPORT INFORMATION
  Report Type: Spontaneous
  Country: US (occurrence: US)
  Receive Date: 20180502
  Receipt Date: 20180502
  Transmission Date: 20180711
  Serious: Yes (Other)
  Sender: FDA-Public Use
  Company Number: US-MYLANLABS-2018M1027463

PATIENT
  Sex: Female

DRUGS (1)
  1. DIVALPROEX SODIUM DELAYED-RELEASE CAPSULES, USP [Suspect]
     Active Substance: DIVALPROEX SODIUM
     Indication: PRODUCT USED FOR UNKNOWN INDICATION
     Route: 048

REACTIONS (2)
  - Menopausal disorder [Recovered/Resolved]
  - Suicidal ideation [Recovered/Resolved]
